FAERS Safety Report 21990168 (Version 2)
Quarter: 2023Q1

REPORT INFORMATION
  Report Type: Spontaneous
  Country: US (occurrence: US)
  Receive Date: 20230214
  Receipt Date: 20230216
  Transmission Date: 20230418
  Serious: Yes (Other)
  Sender: FDA-Public Use
  Company Number: US-ORGANON-O2302USA000865

PATIENT
  Age: 24 Year
  Sex: Female
  Weight: 74.83 kg

DRUGS (1)
  1. NEXPLANON [Suspect]
     Active Substance: ETONOGESTREL
     Indication: Contraception
     Dosage: 1 IMPLANT OF 68 MG IN LEFT ARM EVERY 3 YEARS
     Route: 059
     Dates: start: 20211222

REACTIONS (7)
  - Device dislocation [Not Recovered/Not Resolved]
  - Axillary pain [Unknown]
  - Acne [Unknown]
  - Weight increased [Unknown]
  - Implant site pain [Unknown]
  - Embedded device [Not Recovered/Not Resolved]
  - Complication of device removal [Not Recovered/Not Resolved]

NARRATIVE: CASE EVENT DATE: 20230203
